APPROVED DRUG PRODUCT: TRAMADOL HYDROCHLORIDE
Active Ingredient: TRAMADOL HYDROCHLORIDE
Strength: 50MG
Dosage Form/Route: TABLET;ORAL
Application: A078935 | Product #001
Applicant: NORTHSTAR HEALTHCARE HOLDINGS LTD
Approved: May 26, 2010 | RLD: No | RS: No | Type: DISCN